FAERS Safety Report 15031421 (Version 2)
Quarter: 2018Q3

REPORT INFORMATION
  Report Type: Spontaneous
  Country: US (occurrence: US)
  Receive Date: 20180619
  Receipt Date: 20180726
  Transmission Date: 20181010
  Serious: No
  Sender: FDA-Public Use
  Company Number: US-ACTELION-A-US2018-173665

PATIENT
  Age: 42 Year
  Sex: Female
  Weight: 53.97 kg

DRUGS (3)
  1. VELETRI [Suspect]
     Active Substance: EPOPROSTENOL
     Dosage: 30 NG/KG, PER MIN
     Route: 042
  2. TRACLEER [Concomitant]
     Active Substance: BOSENTAN
     Indication: PULMONARY ARTERIAL HYPERTENSION
  3. VELETRI [Suspect]
     Active Substance: EPOPROSTENOL
     Indication: PULMONARY ARTERIAL HYPERTENSION
     Dosage: 40 NG/KG, PER MIN
     Route: 042
     Dates: start: 2012

REACTIONS (4)
  - Feeling abnormal [Recovering/Resolving]
  - Product deposit [Unknown]
  - Device occlusion [Unknown]
  - Product solubility abnormal [Unknown]

NARRATIVE: CASE EVENT DATE: 20180601
